FAERS Safety Report 17680504 (Version 4)
Quarter: 2022Q1

REPORT INFORMATION
  Report Type: Report from Study
  Country: US (occurrence: None)
  Receive Date: 20200417
  Receipt Date: 20220125
  Transmission Date: 20220423
  Serious: Yes (Hospitalization)
  Sender: FDA-Public Use
  Company Number: US-ROCHE-2582930

PATIENT
  Age: 77 Year
  Sex: Male
  Weight: 113 kg

DRUGS (5)
  1. ATEZOLIZUMAB [Suspect]
     Active Substance: ATEZOLIZUMAB
     Indication: Colorectal cancer
     Dosage: CYCLE 1: INTRAVENOUS 60 MINUTES ON DAY 1, CYCLE 2: INTRAVENOUS 30 MINUTES ON DAY 1, CYCLE 3-10: INTR
     Route: 042
     Dates: start: 20190709
  2. BEVACIZUMAB [Suspect]
     Active Substance: BEVACIZUMAB
     Indication: Colorectal cancer
     Dosage: CYCLE 1: INTRAVENOUS OVER 60 MINUTES ON DAY 1, CYCLE 2: INTRAVENOUS OVER 30 MINUTES ON DAY 1, CYCLE
     Route: 042
     Dates: start: 20190709
  3. LEUCOVORIN CALCIUM [Suspect]
     Active Substance: LEUCOVORIN CALCIUM
     Indication: Colorectal cancer
     Dosage: CYCLE 1: INTRAVENOUS OVER 2 HOURS ON DAY 1, CYCLE 2: INTRAVENOUS OVER 2 HOURS ON DAY 1, CYCLE 3-10:
     Route: 042
     Dates: start: 20190709
  4. FLUOROURACIL [Suspect]
     Active Substance: FLUOROURACIL
     Indication: Colorectal cancer
     Dosage: CYCLE 1, CYCLE 2, CYCLE 3-10, CYCLE 10+: INTRAVENOUS OVER 2-4 MINUTES ON DAY 1, FOLLOWED BY 2400MG/M
     Route: 042
     Dates: start: 20190709
  5. OXALIPLATIN [Suspect]
     Active Substance: OXALIPLATIN
     Indication: Colorectal cancer
     Dosage: CYCLE 1: INTRAVENOUS OVER 2 HOURS ON DAY 1, CYCLE 2: INTRAVENOUS OVER 2 HOURS ON DAY 1, CYCLE 3-10:
     Route: 042
     Dates: start: 20190709

REACTIONS (1)
  - Dehydration [Recovered/Resolved]

NARRATIVE: CASE EVENT DATE: 20190909
